FAERS Safety Report 15323450 (Version 2)
Quarter: 2018Q4

REPORT INFORMATION
  Report Type: Spontaneous
  Country: US (occurrence: US)
  Receive Date: 20180827
  Receipt Date: 20181203
  Transmission Date: 20190204
  Serious: No
  Sender: FDA-Public Use
  Company Number: US-SA-2018SA236486

PATIENT
  Age: 70 Year
  Sex: Male

DRUGS (6)
  1. DEXILANT [Concomitant]
     Active Substance: DEXLANSOPRAZOLE
     Dosage: UNK
  2. ALLOPURINOL. [Concomitant]
     Active Substance: ALLOPURINOL
     Dosage: UNK
  3. ATORVASTATIN [Concomitant]
     Active Substance: ATORVASTATIN
     Dosage: UNK
  4. LORAZEPAM. [Concomitant]
     Active Substance: LORAZEPAM
     Dosage: UNKNOWN
  5. DUPIXENT [Suspect]
     Active Substance: DUPILUMAB
     Dosage: 300 MG, QOW
     Route: 058
     Dates: start: 20180711
  6. LOSARTAN. [Concomitant]
     Active Substance: LOSARTAN
     Dosage: UNK

REACTIONS (7)
  - Hypogeusia [Unknown]
  - Dysgeusia [Unknown]
  - Injection site pain [Unknown]
  - Sleep disorder [Unknown]
  - Parosmia [Unknown]
  - Productive cough [Unknown]
  - Eczema [Unknown]

NARRATIVE: CASE EVENT DATE: 20180820
